FAERS Safety Report 7727259-7 (Version None)
Quarter: 2011Q3

REPORT INFORMATION
  Report Type: 
  Country: None (occurrence: None)
  Receive Date: 20110902
  Receipt Date: 20110823
  Transmission Date: 20111222
  Serious: Yes (Hospitalization)
  Sender: FDA-Public Use
  Company Number: NL-GENZYME-CLOF-1001688

PATIENT
  Sex: Male
  Weight: 37 kg

DRUGS (11)
  1. DAUNOXOME [Suspect]
     Indication: ACUTE MYELOID LEUKAEMIA
     Dosage: 69.75 MG, QD
     Route: 042
     Dates: start: 20110516, end: 20110520
  2. PIPERACILLIN SODIUM W [Concomitant]
     Indication: INFECTION
     Dosage: 10.5 G, QD
     Route: 042
     Dates: start: 20110530, end: 20110601
  3. VANCOMYCIN [Concomitant]
     Indication: INFECTION
     Dosage: 1500 MG, QD
     Route: 042
     Dates: start: 20110515, end: 20110601
  4. TRIMETHOPRIM [Concomitant]
     Indication: PROPHYLAXIS
     Dosage: 160 MG, QD
     Route: 048
     Dates: start: 20110519, end: 20110601
  5. SULFAMETHIZOL [Concomitant]
     Indication: PROPHYLAXIS
     Dosage: 800 MG, QD
     Route: 048
     Dates: start: 20110519, end: 20110601
  6. CYTARABINE [Suspect]
     Indication: ACUTE MYELOID LEUKAEMIA
     Dosage: 2330 MG, QD
     Route: 042
     Dates: start: 20110516, end: 20110520
  7. PUROMYCIN [Concomitant]
     Indication: PROPHYLAXIS
     Dosage: 750 MG, QD
     Route: 048
     Dates: start: 20110526, end: 20110601
  8. EVOLTRA [Suspect]
     Indication: ACUTE MYELOID LEUKAEMIA
     Dosage: 34.88 MG, QD
     Route: 042
     Dates: start: 20110516, end: 20110520
  9. AMIKACIN [Concomitant]
     Indication: INFECTION
     Dosage: 500 MG, QD
     Route: 042
     Dates: start: 20110531, end: 20110601
  10. VORICONAZOLE [Concomitant]
     Indication: PROPHYLAXIS
     Dosage: 400 MG, QD
     Route: 048
     Dates: start: 20110521, end: 20110601
  11. AMPHOTERICIN B [Concomitant]
     Indication: PROPHYLAXIS
     Dosage: 300 MG, QD
     Route: 048
     Dates: start: 20110526, end: 20110601

REACTIONS (2)
  - CAECITIS [None]
  - APPENDICITIS [None]
